FAERS Safety Report 10735714 (Version 2)
Quarter: 2015Q1

REPORT INFORMATION
  Report Type: Spontaneous
  Country: US (occurrence: US)
  Receive Date: 20150126
  Receipt Date: 20150219
  Transmission Date: 20150721
  Serious: Yes (Hospitalization)
  Sender: FDA-Public Use
  Company Number: US-ROCHE-1525010

PATIENT
  Sex: Male

DRUGS (1)
  1. XOLAIR [Suspect]
     Active Substance: OMALIZUMAB
     Indication: MYCOTIC ALLERGY
     Dosage: FOR ABOUT 4 MONTHS
     Route: 065
     Dates: start: 2014

REACTIONS (1)
  - Meningitis viral [Recovered/Resolved]
